FAERS Safety Report 9957911 (Version 1)
Quarter: 2014Q1

REPORT INFORMATION
  Report Type: Report from Study
  Country: US (occurrence: US)
  Receive Date: 20140304
  Receipt Date: 20140304
  Transmission Date: 20141002
  Serious: No
  Sender: FDA-Public Use
  Company Number: US-ABBVIE-13P-163-1092717-00

PATIENT
  Sex: Male

DRUGS (3)
  1. HUMIRA [Suspect]
     Indication: PSORIASIS
     Dates: start: 201304
  2. CLOBETASOL [Concomitant]
     Indication: PRODUCT USED FOR UNKNOWN INDICATION
     Dosage: TWICE A DAY EVERY OTHER DAY - ALTERNATE WITH STEROID OINTMENT
  3. STEROID [Concomitant]
     Indication: PRODUCT USED FOR UNKNOWN INDICATION
     Dosage: TWICE A DAY EVERY OTHER DAY - ALTERNATE WITH CLOBETASOL SPRAY

REACTIONS (4)
  - Pruritus [Recovering/Resolving]
  - Burning sensation [Not Recovered/Not Resolved]
  - Rash papular [Unknown]
  - Constipation [Not Recovered/Not Resolved]
